FAERS Safety Report 20198845 (Version 14)
Quarter: 2022Q3

REPORT INFORMATION
  Report Type: Spontaneous
  Country: CZ (occurrence: CZ)
  Receive Date: 20211217
  Receipt Date: 20220809
  Transmission Date: 20221026
  Serious: Yes (Life-Threatening, Hospitalization, Other)
  Sender: FDA-Public Use
  Company Number: CZ-MYLANLABS-2021M1080332

PATIENT
  Age: 77 Year
  Sex: Male

DRUGS (52)
  1. LEVETIRACETAM [Interacting]
     Active Substance: LEVETIRACETAM
     Indication: Epilepsy
     Dosage: 500 MILLIGRAM, QD (500 MG, BID (1-0-1)  )
     Route: 065
  2. LEVETIRACETAM [Interacting]
     Active Substance: LEVETIRACETAM
     Dosage: 1000 MILLIGRAM, QD (1000 MILLIGRAM DAILY; 500 MG 1-0-1 )
     Route: 065
  3. LEVETIRACETAM [Interacting]
     Active Substance: LEVETIRACETAM
     Dosage: 2 DOSAGE FORM, QD, (1 DF, 2X/DAY (ONE IN THE MORNING, ONE IN THE EVENING))
     Route: 065
  4. LEVETIRACETAM [Interacting]
     Active Substance: LEVETIRACETAM
     Dosage: UNK
     Route: 065
  5. LEVETIRACETAM [Interacting]
     Active Substance: LEVETIRACETAM
     Dosage: 1000 MILLIGRAM, QD, 500 MILLIGRAM, BID (IN MORNING AND EVENING) (1-0-1)
     Route: 065
  6. GABAPENTIN [Interacting]
     Active Substance: GABAPENTIN
     Indication: Epilepsy
     Dosage: 100 MG, TID (1-1-1, 1 DF, 3X/DAY (1 TABLET IN MORNING,1 AT NOON,1 IN EVENING))
     Route: 065
  7. GABAPENTIN [Interacting]
     Active Substance: GABAPENTIN
     Dosage: 300 MILLIGRAM DAILY; 100 MG 1-1-1
     Route: 065
  8. GABAPENTIN [Interacting]
     Active Substance: GABAPENTIN
     Dosage: UNK
     Route: 065
  9. GABAPENTIN [Interacting]
     Active Substance: GABAPENTIN
     Dosage: 3 DOSAGE FORM, QD (1 DF, 3X/DAY (ONE TABLET IN THE MORNING, ONE AT NOON, ONE IN THE EVENING)
     Route: 065
  10. DOXAZOSIN [Suspect]
     Active Substance: DOXAZOSIN MESYLATE
     Indication: Hypertension
     Dosage: 4 MILLIGRAM, QD (0-0-1)
     Route: 065
  11. DOXAZOSIN [Suspect]
     Active Substance: DOXAZOSIN MESYLATE
     Indication: Lower urinary tract symptoms
  12. DARIFENACIN [Suspect]
     Active Substance: DARIFENACIN
     Indication: Urinary retention
     Dosage: 15 MILLIGRAM, QD (1-0-0)
     Route: 065
  13. DARIFENACIN [Suspect]
     Active Substance: DARIFENACIN
     Indication: Dysuria
  14. DARIFENACIN [Suspect]
     Active Substance: DARIFENACIN
     Indication: Urinary tract infection
  15. DARIFENACIN [Suspect]
     Active Substance: DARIFENACIN
     Indication: Lower urinary tract symptoms
  16. DESMOPRESSIN [Suspect]
     Active Substance: DESMOPRESSIN
     Indication: Lower urinary tract symptoms
     Dosage: 60 MICROGRAM, QD (60 UG, QD (0-0-0-1)  )
     Route: 065
  17. SOLIFENACIN [Interacting]
     Active Substance: SOLIFENACIN
     Indication: Urinary tract infection
     Dosage: 10 MILLIGRAM, QD (1-0-0, (IN THE MORNING))
     Route: 065
  18. SOLIFENACIN [Interacting]
     Active Substance: SOLIFENACIN
     Indication: Urinary retention
     Dosage: 10 MILLIGRAM, QD (10 MG, ONCE DAILY (1-0-0))
     Route: 048
     Dates: start: 201812
  19. SOLIFENACIN [Interacting]
     Active Substance: SOLIFENACIN
     Indication: Dysuria
  20. SOLIFENACIN [Interacting]
     Active Substance: SOLIFENACIN
     Indication: Lower urinary tract symptoms
  21. ATORVASTATIN CALCIUM [Suspect]
     Active Substance: ATORVASTATIN CALCIUM
     Indication: Product used for unknown indication
     Dosage: UNK
     Route: 065
  22. ATORVASTATIN CALCIUM [Suspect]
     Active Substance: ATORVASTATIN CALCIUM
     Dosage: 15 MILLIGRAM, QD, 15 MILLIGRAM, OD (0-0-1)
     Route: 065
  23. PERINDOPRIL [Suspect]
     Active Substance: PERINDOPRIL
     Indication: Cardiac failure
     Dosage: UNK
     Route: 065
  24. PERINDOPRIL [Suspect]
     Active Substance: PERINDOPRIL
     Dosage: 4 MILLIGRAM, QD
     Route: 065
  25. DOXAZOSIN [Concomitant]
     Active Substance: DOXAZOSIN MESYLATE
     Indication: Product used for unknown indication
     Dosage: 4 MILLIGRAM DAILY; DOXAZOSIN 4 MG TBL 0-0-1, (IN THE EVENING)
     Route: 048
  26. DOXAZOSIN [Concomitant]
     Active Substance: DOXAZOSIN MESYLATE
     Dosage: 4 MILLIGRAM, QD, (4 MG, 1X/DAY (IN THE EVENING))
     Route: 065
  27. DARIFENACIN [Concomitant]
     Active Substance: DARIFENACIN
     Indication: Product used for unknown indication
     Dosage: 15 MILLIGRAM DAILY; 1-0-0 (IN THE MORNING)
     Route: 065
  28. DARIFENACIN [Concomitant]
     Active Substance: DARIFENACIN
     Dosage: 15 MILLIGRAM, QD, (15 MG, 1X/DAY (IN THE MORNING))
     Route: 065
  29. DESMOPRESSIN [Concomitant]
     Active Substance: DESMOPRESSIN
     Indication: Lower urinary tract symptoms
     Dosage: 240 MICROGRAM DAILY; DESMOPRESSIN 60 UG 0-0-0-1
     Route: 065
  30. DESMOPRESSIN [Concomitant]
     Active Substance: DESMOPRESSIN
     Dosage: 60 MICROGRAM, QD (IN THE EVENING)
     Route: 065
  31. DESMOPRESSIN [Concomitant]
     Active Substance: DESMOPRESSIN
     Dosage: 60 MICROGRAM, QD, (60 UG, 1X/DAY (IN THE EVENING))
     Route: 065
  32. SOLIFENACIN [Concomitant]
     Active Substance: SOLIFENACIN
     Indication: Urinary retention
     Dosage: 10 MILLIGRAM, QD, (10 MG, 1X/DAY (IN THE MORNING))
     Route: 065
  33. BISOPROLOL [Concomitant]
     Active Substance: BISOPROLOL
     Indication: Cardiac failure
     Dosage: 5 MILLIGRAM, QD (1-0-0, IN THE MORNING)
     Route: 065
  34. BISOPROLOL [Concomitant]
     Active Substance: BISOPROLOL
     Dosage: 5 MILLIGRAM, QD, (5 MG, 1X/DAY (IN THE MORNING))
     Route: 065
  35. PERINDOPRIL [Concomitant]
     Active Substance: PERINDOPRIL
     Indication: Cardiac failure
     Dosage: 4 MILLIGRAM, QD (1-0-0, (IN THE MORNING))
     Route: 065
  36. SPIRONOLACTONE [Concomitant]
     Active Substance: SPIRONOLACTONE
     Indication: Cardiac failure
     Dosage: 25 MILLIGRAM, QD (1-0-0, IN THE MORNING)
     Route: 048
  37. SPIRONOLACTONE [Concomitant]
     Active Substance: SPIRONOLACTONE
     Dosage: 25 MILLIGRAM, QD, (25 MG, 1X/DAY (IN THE MORNING))
     Route: 065
  38. LERCANIDIPINE [Concomitant]
     Active Substance: LERCANIDIPINE
     Indication: Product used for unknown indication
     Dosage: 20 MILLIGRAM, QD (0-0-1, (IN THE EVENING))
     Route: 065
  39. LERCANIDIPINE [Concomitant]
     Active Substance: LERCANIDIPINE
     Dosage: 20 MILLIGRAM, QD, (20 MG, 1X/DAY (IN THE EVENING))
     Route: 065
  40. ATORVASTATIN [Concomitant]
     Active Substance: ATORVASTATIN
     Indication: Ischaemic heart disease prophylaxis
     Dosage: 15 MILLIGRAM, QD (0-0-1, (IN THE EVENING))
     Route: 065
  41. ASPIRIN [Concomitant]
     Active Substance: ASPIRIN
     Indication: Product used for unknown indication
     Dosage: 100 MILLIGRAM, QD (1-0-0, (IN THE MORNING))
     Route: 065
  42. ASPIRIN [Concomitant]
     Active Substance: ASPIRIN
     Dosage: 300 MILLIGRAM, TID ( 100 MG, THRICE DAILY (1-1-1) (NEWLY ABOUT 14 DAYS)
     Route: 065
  43. ASPIRIN [Concomitant]
     Active Substance: ASPIRIN
     Dosage: 100 MILLIGRAM, QD, (100 MG, 1X/DAY (IN THE MORNING))
     Route: 065
  44. SODIUM CHLORIDE [Concomitant]
     Active Substance: SODIUM CHLORIDE
     Indication: Hyponatraemia
     Dosage: 1000 MILLIGRAM, BID (ONE IN MORNING, ONE IN EVENING)
     Route: 065
  45. SODIUM CHLORIDE [Concomitant]
     Active Substance: SODIUM CHLORIDE
     Dosage: 2000 MILLIGRAM, QD (2000 MILLIGRAM DAILY; NACL 1,000 MG (IPLP CAPSULES) 1-0-1)
     Route: 048
  46. SODIUM CHLORIDE [Concomitant]
     Active Substance: SODIUM CHLORIDE
     Dosage: 2000 MILLIGRAM QD, 1000 MG, TWICE DAILY (1-0-1) (INDIVIDUALY PREPARED CAPSULES)
     Route: 065
  47. SODIUM CHLORIDE [Concomitant]
     Active Substance: SODIUM CHLORIDE
     Dosage: 2000 MILLIGRAM, QD, (1000 MG, 2X/DAY (ONE IN THE MORNING, ONE IN THE EVENING))
     Route: 065
  48. OMEPRAZOLE [Concomitant]
     Active Substance: OMEPRAZOLE
     Indication: Product used for unknown indication
     Dosage: 20 MILLIGRAM, QD (1-0-0, (IN THE MORNING))
     Route: 065
  49. LEVETIRACETAM [Concomitant]
     Active Substance: LEVETIRACETAM
     Indication: Product used for unknown indication
     Dosage: 500 MILLIGRAM, BID (500 MG, TWICE DAILY (1-0-1))
     Route: 065
  50. LEVETIRACETAM [Concomitant]
     Active Substance: LEVETIRACETAM
     Dosage: 1000 MILLIGRAM, 500 MG, BID (1-0-1)
     Route: 065
  51. GABAPENTIN [Concomitant]
     Active Substance: GABAPENTIN
     Indication: Product used for unknown indication
     Dosage: 100 MILLIGRAM, TID (100 MG, THRICE DAILY (1-1-1) (NEWLY ABOUT 14 DAYS))
     Route: 065
  52. GABAPENTIN [Concomitant]
     Active Substance: GABAPENTIN
     Dosage: 300 MILLIGRAM, TID, 100 MG, TID (1-1-1)
     Route: 065

REACTIONS (18)
  - Peripheral swelling [Recovered/Resolved]
  - Hyponatraemia [Recovered/Resolved]
  - Cognitive disorder [Unknown]
  - Urinary retention [Unknown]
  - Dysuria [Unknown]
  - Adverse event [Unknown]
  - Treatment noncompliance [Unknown]
  - Adverse drug reaction [Unknown]
  - Inappropriate antidiuretic hormone secretion [Recovered/Resolved]
  - Concomitant disease aggravated [Unknown]
  - Urinary tract infection [Unknown]
  - Duplicate therapy error [Unknown]
  - Off label use [Unknown]
  - Product use in unapproved indication [Unknown]
  - Overdose [Unknown]
  - Condition aggravated [Unknown]
  - Drug interaction [Unknown]
  - Intentional product misuse [Unknown]

NARRATIVE: CASE EVENT DATE: 20200101
